FAERS Safety Report 10090068 (Version 2)
Quarter: 2014Q2

REPORT INFORMATION
  Report Type: Spontaneous
  Country: US (occurrence: None)
  Receive Date: 20140417
  Receipt Date: 20140516
  Transmission Date: 20141212
  Serious: Yes (Death, Hospitalization)
  Sender: FDA-Public Use
  Company Number: UTC-047143

PATIENT
  Age: 48 Year
  Sex: Female
  Weight: 154.2 kg

DRUGS (2)
  1. REMODULIN (TREPROSTINIL SODIUM (SQ/IV)) INJECTION, 10 MG/ML [Suspect]
     Indication: COR PULMONALE CHRONIC
     Dosage: 92.16 UG/KG (0.064 UG/KG 1 IN 1MIN) SUBCUTANEOUS
     Route: 058
     Dates: start: 20061211
  2. COUMADIN (WARFARIN SODIUM) [Concomitant]

REACTIONS (3)
  - Death [None]
  - Acute respiratory failure [None]
  - Cardiogenic shock [None]
